FAERS Safety Report 6447279-2 (Version None)
Quarter: 2009Q4

REPORT INFORMATION
  Report Type: 
  Country: None (occurrence: None)
  Receive Date: 20091119
  Receipt Date: 20091109
  Transmission Date: 20100525
  Serious: Yes (Other)
  Sender: FDA-Public Use
  Company Number: PHHY2009CH49192

PATIENT
  Age: 61 Year
  Sex: Female

DRUGS (5)
  1. PAMIDRONATE DISODIUM [Suspect]
     Indication: OSTEOPOROSIS
  2. PREDNISONE [Concomitant]
  3. AZATHIOPRINE [Concomitant]
  4. CYCLOSPORINE [Concomitant]
  5. ESTRADIOL [Concomitant]
     Route: 062

REACTIONS (3)
  - DRUG LEVEL ABOVE THERAPEUTIC [None]
  - FEMUR FRACTURE [None]
  - FRACTURE [None]
